FAERS Safety Report 5008531-0 (Version None)
Quarter: 2006Q2

REPORT INFORMATION
  Report Type: 
  Country: None (occurrence: None)
  Receive Date: 20060523
  Receipt Date: 20060512
  Transmission Date: 20061013
  Serious: Yes (Other)
  Sender: FDA-Public Use
  Company Number: PHBS2006JP07214

PATIENT

DRUGS (1)
  1. CYCLOSPORINE [Suspect]
     Indication: NEPHROTIC SYNDROME
     Route: 065

REACTIONS (2)
  - CYSTITIS HAEMORRHAGIC [None]
  - NEPHROLITHIASIS [None]
